FAERS Safety Report 24691460 (Version 1)
Quarter: 2024Q4

REPORT INFORMATION
  Report Type: Spontaneous
  Country: US (occurrence: None)
  Receive Date: 20241203
  Receipt Date: 20241203
  Transmission Date: 20250115
  Serious: Yes (Disabling)
  Sender: Public
  Company Number: None

PATIENT
  Age: 60 Year
  Sex: Female
  Weight: 57.6 kg

DRUGS (14)
  1. QULIPTA [Suspect]
     Active Substance: ATOGEPANT
     Indication: Migraine
     Dosage: 1 TABLET DILY ORAL ?
     Route: 048
     Dates: start: 20230918, end: 20241016
  2. LEXAPRO [Concomitant]
     Active Substance: ESCITALOPRAM OXALATE
  3. CYCLOBENZAPRINE [Concomitant]
     Active Substance: CYCLOBENZAPRINE
  4. IMITREX [Concomitant]
     Active Substance: SUMATRIPTAN SUCCINATE
  5. ALPRAZOLAM [Concomitant]
     Active Substance: ALPRAZOLAM
  6. ATENOLOL [Concomitant]
     Active Substance: ATENOLOL
  7. BUTALBITAL-ACETAMINOPHNE-CAFFEINE [Concomitant]
  8. ERYTHROMYCIN 2% TOPICAL GEL [Concomitant]
  9. CALCIUM 600 + D+ MINERALS [Concomitant]
  10. VITAMIN C [Concomitant]
     Active Substance: ASCORBIC ACID
  11. IBUPROFEN [Concomitant]
     Active Substance: IBUPROFEN
  12. ACETAMINOPHEN [Concomitant]
     Active Substance: ACETAMINOPHEN
  13. TYLENOL PM [Concomitant]
     Active Substance: ACETAMINOPHEN\DIPHENHYDRAMINE
  14. Certavite Senior [Concomitant]

REACTIONS (3)
  - Nausea [None]
  - Vomiting [None]
  - Tinnitus [None]

NARRATIVE: CASE EVENT DATE: 20231207
